FAERS Safety Report 8447102-0 (Version None)
Quarter: 2012Q2

REPORT INFORMATION
  Report Type: 
  Country: None (occurrence: None)
  Receive Date: 20120619
  Receipt Date: 20110815
  Transmission Date: 20120825
  Serious: No
  Sender: FDA-Public Use
  Company Number: US-PFIZER INC-K201100962

PATIENT
  Sex: Female
  Weight: 61.224 kg

DRUGS (1)
  1. LEVOXYL [Suspect]
     Indication: HYPOTHYROIDISM
     Dosage: 88 UG, 1X/DAY
     Route: 048

REACTIONS (8)
  - LOCAL SWELLING [None]
  - BLOOD THYROID STIMULATING HORMONE DECREASED [None]
  - EAR INFECTION [None]
  - EATING DISORDER [None]
  - GOITRE [None]
  - MUSCULOSKELETAL DISCOMFORT [None]
  - EAR PAIN [None]
  - NECK PAIN [None]
